FAERS Safety Report 15125016 (Version 1)
Quarter: 2018Q3

REPORT INFORMATION
  Report Type: Spontaneous
  Country: US (occurrence: US)
  Receive Date: 20180613
  Receipt Date: 20180613
  Transmission Date: 20181010
  Serious: No
  Sender: FDA-Public Use
  Company Number: None

PATIENT
  Sex: Female
  Weight: 57.61 kg

DRUGS (1)
  1. CIMZIA [Suspect]
     Active Substance: CERTOLIZUMAB PEGOL
     Indication: RHEUMATOID ARTHRITIS
     Dosage: ?          OTHER FREQUENCY:Q 4 WEEKS;?
     Route: 058
     Dates: start: 201710

REACTIONS (13)
  - Joint swelling [None]
  - Ear swelling [None]
  - Eyelid oedema [None]
  - Arthralgia [None]
  - Diarrhoea [None]
  - Fatigue [None]
  - Dry skin [None]
  - Pruritus generalised [None]
  - Haemorrhage [None]
  - Alopecia [None]
  - Swelling face [None]
  - Pain [None]
  - Abdominal discomfort [None]
